FAERS Safety Report 18606820 (Version 11)
Quarter: 2021Q4

REPORT INFORMATION
  Report Type: Report from Study
  Country: CN (occurrence: None)
  Receive Date: 20201211
  Receipt Date: 20211104
  Transmission Date: 20220303
  Serious: Yes (Hospitalization)
  Sender: FDA-Public Use
  Company Number: CN-EISAI MEDICAL RESEARCH-EC-2020-085144

PATIENT
  Age: 63 Year
  Sex: Male
  Weight: 60 kg

DRUGS (10)
  1. LENVATINIB [Suspect]
     Active Substance: LENVATINIB
     Indication: Hepatocellular carcinoma
     Route: 048
     Dates: start: 20200103, end: 20200302
  2. LENVATINIB [Suspect]
     Active Substance: LENVATINIB
     Dosage: STARTING AT 8 MG FLUCTUATED DOSAGE
     Route: 048
     Dates: start: 20200303
  3. PEMBROLIZUMAB [Suspect]
     Active Substance: PEMBROLIZUMAB
     Indication: Hepatocellular carcinoma
     Route: 041
     Dates: start: 20200103, end: 20200122
  4. PEMBROLIZUMAB [Suspect]
     Active Substance: PEMBROLIZUMAB
     Route: 041
     Dates: start: 20200212, end: 20200212
  5. PEMBROLIZUMAB [Suspect]
     Active Substance: PEMBROLIZUMAB
     Route: 041
     Dates: start: 20200303, end: 20210202
  6. NITRENDIPINE [Concomitant]
     Active Substance: NITRENDIPINE
     Dates: start: 201608, end: 20200708
  7. CAPTOPRIL [Concomitant]
     Active Substance: CAPTOPRIL
     Dates: start: 201608, end: 20200708
  8. ENTECAVIR [Concomitant]
     Active Substance: ENTECAVIR
     Dates: start: 20190920
  9. NIFEDIPINE [Concomitant]
     Active Substance: NIFEDIPINE
     Dates: start: 20200121, end: 20200708
  10. LEVOTHYROXINE SODIUM [Concomitant]
     Active Substance: LEVOTHYROXINE SODIUM
     Dates: start: 20200121, end: 20200414

REACTIONS (1)
  - Amylase increased [Recovered/Resolved]

NARRATIVE: CASE EVENT DATE: 20200302
